FAERS Safety Report 26206959 (Version 1)
Quarter: 2025Q4

REPORT INFORMATION
  Report Type: Spontaneous
  Country: US (occurrence: US)
  Receive Date: 20251229
  Receipt Date: 20251229
  Transmission Date: 20260118
  Serious: Yes (Death)
  Sender: Phathom Pharmaceuticals
  Company Number: US-PHATHOM PHARMACEUTICALS INC.-2025PHT03771

PATIENT
  Age: 60 Year
  Sex: Female

DRUGS (21)
  1. VOQUEZNA [Suspect]
     Active Substance: VONOPRAZAN FUMARATE
     Dosage: UNK
     Route: 048
     Dates: start: 20250929, end: 2025
  2. PROLIA [Concomitant]
     Active Substance: DENOSUMAB
  3. RESTASIS [Concomitant]
     Active Substance: CYCLOSPORINE
  4. SEROQUEL [Concomitant]
     Active Substance: QUETIAPINE FUMARATE
  5. ACETAMINOPHEN\DICHLORALPHENAZONE\ISOMETHEPTENE [Concomitant]
     Active Substance: ACETAMINOPHEN\DICHLORALPHENAZONE\ISOMETHEPTENE
  6. CORTEF [Concomitant]
     Active Substance: HYDROCORTISONE
  7. XANAX XR [Concomitant]
     Active Substance: ALPRAZOLAM
  8. FARXIGA [Concomitant]
     Active Substance: DAPAGLIFLOZIN PROPANEDIOL
  9. MOTEGRITY [Concomitant]
     Active Substance: PRUCALOPRIDE SUCCINATE
  10. HERBALS [Concomitant]
     Active Substance: HERBALS
  11. VITAMIN B12 [Concomitant]
     Active Substance: CYANOCOBALAMIN
  12. VITAMIN D3 [Concomitant]
     Active Substance: CHOLECALCIFEROL
  13. VITAMINS [Concomitant]
     Active Substance: VITAMINS
  14. GAMUNEX [Concomitant]
     Active Substance: HUMAN IMMUNOGLOBULIN G
  15. TROKENDI XR [Concomitant]
     Active Substance: TOPIRAMATE
  16. PEPCID [Concomitant]
     Active Substance: FAMOTIDINE
  17. BOTOX [Concomitant]
     Active Substance: ONABOTULINUMTOXINA
  18. QULIPTA [Concomitant]
     Active Substance: ATOGEPANT
  19. LEVOTHYROXINE [Concomitant]
     Active Substance: LEVOTHYROXINE
  20. ATORVASTATIN [Concomitant]
     Active Substance: ATORVASTATIN
  21. CYMBALTA [Concomitant]
     Active Substance: DULOXETINE HYDROCHLORIDE

REACTIONS (1)
  - Death [Fatal]

NARRATIVE: CASE EVENT DATE: 20250101
